FAERS Safety Report 8435149-X (Version None)
Quarter: 2012Q2

REPORT INFORMATION
  Report Type: 
  Country: None (occurrence: None)
  Receive Date: 20120614
  Receipt Date: 20120606
  Transmission Date: 20120825
  Serious: Yes (Hospitalization)
  Sender: FDA-Public Use
  Company Number: US-BAYER-2012-057525

PATIENT
  Age: 40 Year
  Sex: Female
  Weight: 159.18 kg

DRUGS (7)
  1. BIAXIN [Concomitant]
     Indication: BRONCHITIS
     Dosage: UNK
     Route: 048
     Dates: start: 20091106
  2. PROTONIX [Concomitant]
  3. YASMIN [Suspect]
  4. DROSPIRENONE AND ETHINYL ESTRADIOL [Suspect]
  5. YAZ [Suspect]
  6. ASPIRIN [Concomitant]
     Indication: PULMONARY EMBOLISM
     Dosage: UNK
     Dates: start: 20091101
  7. LOPID [Concomitant]
     Indication: BLOOD TRIGLYCERIDES INCREASED

REACTIONS (2)
  - DEEP VEIN THROMBOSIS [None]
  - PULMONARY EMBOLISM [None]
